FAERS Safety Report 8779272 (Version 4)
Quarter: 2013Q1

REPORT INFORMATION
  Report Type: Spontaneous
  Country: US (occurrence: US)
  Receive Date: 20120912
  Receipt Date: 20130214
  Transmission Date: 20140127
  Serious: Yes (Hospitalization)
  Sender: FDA-Public Use
  Company Number: US-009507513-1209USA002949

PATIENT
  Sex: Male

DRUGS (1)
  1. PROVENTIL [Suspect]
     Indication: CHRONIC OBSTRUCTIVE PULMONARY DISEASE
     Dosage: 2 PUFFS, UNK
     Route: 055
     Dates: start: 2006

REACTIONS (5)
  - Ulcer [Recovered/Resolved]
  - Prostatic disorder [Recovered/Resolved]
  - Drug dose omission [Unknown]
  - Product quality issue [Unknown]
  - Dyspnoea [Recovered/Resolved]
